FAERS Safety Report 24629260 (Version 1)
Quarter: 2024Q4

REPORT INFORMATION
  Report Type: Spontaneous
  Country: CN (occurrence: CN)
  Receive Date: 20241118
  Receipt Date: 20241118
  Transmission Date: 20250115
  Serious: Yes (Hospitalization, Other)
  Sender: BAXTER
  Company Number: None

PATIENT
  Age: 61 Year
  Sex: Female
  Weight: 67 kg

DRUGS (4)
  1. CYCLOPHOSPHAMIDE [Suspect]
     Active Substance: CYCLOPHOSPHAMIDE
     Indication: Breast cancer female
     Dosage: 1 G, ONE TIME IN ONE DAY, DILUTED WITH 100 ML OF 0.9% SODIUM CHLORIDE, 3 COURSES OF CHEMOTHERAPY
     Route: 041
     Dates: start: 20240814, end: 20241025
  2. PIRARUBICIN HYDROCHLORIDE [Suspect]
     Active Substance: PIRARUBICIN HYDROCHLORIDE
     Indication: Breast cancer female
     Dosage: 90 MG, ONE TIME IN ONE DAY, DILUTED WITH 300 ML OF 5% GLUCOSE, 3 COURSES OF CHEMOTHERAPY
     Route: 041
     Dates: start: 20240814, end: 20241025
  3. SODIUM CHLORIDE [Suspect]
     Active Substance: SODIUM CHLORIDE
     Indication: Medication dilution
     Dosage: 100 ML, ONE TIME IN ONE DAY, USED TO DILUTE 1 G OF CYCLOPHOSPHAMIDE, 3 COURSES OF CHEMOTHERAPY
     Route: 041
     Dates: start: 20240814, end: 20241025
  4. DEXTROSE [Suspect]
     Active Substance: DEXTROSE MONOHYDRATE
     Indication: Breast cancer female
     Dosage: 300 ML, ONE TIME IN ONE DAY, USED TO DILUTE 90 MG OF PIRARUBICIN HYDROCHLORIDE, 3 COURSES OF CHEMOTH
     Route: 041
     Dates: start: 20240814, end: 20241025

REACTIONS (3)
  - Breast cancer [Unknown]
  - Myelosuppression [Recovering/Resolving]
  - Pyrexia [Recovered/Resolved]

NARRATIVE: CASE EVENT DATE: 20241025
